FAERS Safety Report 15434867 (Version 4)
Quarter: 2018Q4

REPORT INFORMATION
  Report Type: Report from Study
  Country: EG (occurrence: EG)
  Receive Date: 20180927
  Receipt Date: 20181029
  Transmission Date: 20190204
  Serious: Yes (Death, Hospitalization)
  Sender: FDA-Public Use
  Company Number: EG-PFIZER INC-2018354074

PATIENT
  Age: 60 Year
  Sex: Male
  Weight: 63 kg

DRUGS (2)
  1. SUTENT [Suspect]
     Active Substance: SUNITINIB MALATE
     Indication: METASTATIC RENAL CELL CARCINOMA
     Dosage: 50 MG, ONCE DAILY 2 WEEKS AND 1 WEEK OFF
     Route: 048
     Dates: start: 20180806, end: 20180807
  2. SUTENT [Suspect]
     Active Substance: SUNITINIB MALATE
     Dosage: 37.5 MG, DAILY 2 WEEKS ON 1 WEEK OFF
     Route: 048
     Dates: start: 20180807, end: 20180924

REACTIONS (9)
  - Hepatotoxicity [Not Recovered/Not Resolved]
  - Hepatic failure [Fatal]
  - Haemorrhage intracranial [Fatal]
  - Renal impairment [Not Recovered/Not Resolved]
  - Hypoglycaemia [Not Recovered/Not Resolved]
  - General physical health deterioration [Unknown]
  - Liver disorder [Unknown]
  - Metabolic acidosis [Recovering/Resolving]
  - Hepatotoxicity [Unknown]

NARRATIVE: CASE EVENT DATE: 20180829
